FAERS Safety Report 5375454-7 (Version None)
Quarter: 2007Q2

REPORT INFORMATION
  Report Type: 
  Country: None (occurrence: None)
  Receive Date: 20070629
  Receipt Date: 20070618
  Transmission Date: 20071010
  Serious: Yes (Other)
  Sender: FDA-Public Use
  Company Number: HR-PFIZER INC-2007043462

PATIENT
  Sex: Male
  Weight: 137 kg

DRUGS (5)
  1. SU-011,248 [Suspect]
     Indication: METASTATIC RENAL CELL CARCINOMA
     Route: 048
     Dates: start: 20070509, end: 20070524
  2. CARVEDILOL [Concomitant]
     Route: 048
  3. AMIODARONE [Concomitant]
     Route: 048
  4. IRUZID [Concomitant]
     Route: 048
  5. IRON POLYMALTOSE [Concomitant]

REACTIONS (1)
  - RETINAL ARTERY EMBOLISM [None]
